FAERS Safety Report 9523819 (Version 2)
Quarter: 2013Q3

REPORT INFORMATION
  Report Type: Spontaneous
  Country: DE (occurrence: DE)
  Receive Date: 20130916
  Receipt Date: 20130916
  Transmission Date: 20140515
  Serious: Yes (Hospitalization)
  Sender: FDA-Public Use
  Company Number: DE-009507513-2011SP055561

PATIENT
  Age: 74 Year
  Sex: Male

DRUGS (16)
  1. MIRTAZAPINE [Suspect]
     Dosage: 7.5 MG, UNK
     Route: 048
     Dates: start: 20110504, end: 20110505
  2. LIRAGLUTIDE [Concomitant]
     Dosage: LONG TERM USE
     Route: 048
  3. FORMOTEROL FUMARATE [Concomitant]
     Dosage: DOSE: 2 HUB.; USE: FOR YEARS
     Route: 055
  4. L-THYROXIN [Concomitant]
     Dosage: USE: FOR YEARS.
     Route: 048
  5. DIOVAN [Concomitant]
     Dosage: USE: FOR YEARS.
     Route: 048
  6. ASPIRIN [Concomitant]
     Dosage: USE: FOR YEARS.
     Route: 048
  7. PLAVIX [Concomitant]
     Indication: PRODUCT USED FOR UNKNOWN INDICATION
     Dosage: USE: FOR YEARS.
     Route: 048
  8. SIMVASTATIN [Concomitant]
     Dosage: USE: FOR YEARS.
     Route: 048
  9. ALLOPURINOL [Concomitant]
     Indication: PRODUCT USED FOR UNKNOWN INDICATION
     Dosage: USE: FOR YEARS.
     Route: 048
  10. TAMSULOSIN HYDROCHLORIDE [Concomitant]
     Indication: PRODUCT USED FOR UNKNOWN INDICATION
     Dosage: USE: FOR MONTHS
     Route: 048
  11. EMSELEX [Concomitant]
     Dosage: USE: FOR MONTHS
     Route: 048
  12. PANTOZOL [Concomitant]
     Dosage: USE: FOR MONTHS
     Route: 048
  13. POLYETHYLENE GLYCOL 3350 (+) POTASSIUM CHLORIDE (+) SODIUM BICARBONATE [Concomitant]
     Dosage: DOSE: 2 BTL; USE: FOR MONTHS
     Route: 048
  14. CLEXANE (ENOXAPARIN SODIUM) [Concomitant]
     Dosage: USE: FOR LONG
     Route: 058
  15. LANTUS [Concomitant]
     Dosage: USE: FOR LONG
  16. CITALOPRAM [Concomitant]
     Dosage: AS PRE-TREATMENT
     Dates: start: 20110408

REACTIONS (1)
  - Electrocardiogram QT prolonged [Recovered/Resolved]
